FAERS Safety Report 6468567-X (Version None)
Quarter: 2009Q4

REPORT INFORMATION
  Report Type: 
  Country: None (occurrence: None)
  Receive Date: 20091203
  Receipt Date: 20091124
  Transmission Date: 20100525
  Serious: Yes (Death)
  Sender: FDA-Public Use
  Company Number: JP-BAYER-200913553BYL

PATIENT
  Age: 57 Year
  Sex: Male
  Weight: 80 kg

DRUGS (7)
  1. NEXAVAR [Suspect]
     Indication: HEPATIC NEOPLASM MALIGNANT
     Dosage: TOTAL DAILY DOSE: 800 MG  UNIT DOSE: 200 MG
     Route: 048
     Dates: start: 20090919, end: 20090923
  2. DIOVAN [Concomitant]
     Indication: HYPERTENSION
  3. OLMETEC [Concomitant]
     Dosage: BEFORE NEXAVAR ADMINISTRATION
     Route: 048
     Dates: end: 20090921
  4. OMEPRAL [Concomitant]
     Dosage: BEFORE NEXAVAR ADMINISTRATION
     Route: 048
     Dates: end: 20090923
  5. LAC-B [Concomitant]
     Dosage: BEFORE NEXAVAR ADMINISTRATION
     Route: 048
     Dates: end: 20090923
  6. BARACLUDE [Concomitant]
     Dosage: BEFORE NEXAVAR ADMINISTRATION
     Route: 048
     Dates: end: 20090923
  7. UREPEARL [Concomitant]
     Indication: PROPHYLAXIS
     Dosage: BEFORE NEXAVAR ADMINISTRATION
     Route: 061
     Dates: start: 20090918, end: 20090923

REACTIONS (2)
  - ANEURYSM RUPTURED [None]
  - HYPERTENSION [None]
